FAERS Safety Report 25176312 (Version 3)
Quarter: 2025Q2

REPORT INFORMATION
  Report Type: Spontaneous
  Country: US (occurrence: US)
  Receive Date: 20250409
  Receipt Date: 20250423
  Transmission Date: 20250717
  Serious: Yes (Other)
  Sender: ALEXION PHARMACEUTICALS
  Company Number: US-AstraZeneca-CH-00839149AP

PATIENT
  Age: 75 Year

DRUGS (1)
  1. BYDUREON BCISE [Suspect]
     Active Substance: EXENATIDE
     Route: 065

REACTIONS (7)
  - Drug dose omission by device [Unknown]
  - Device leakage [Unknown]
  - Injection site haemorrhage [Unknown]
  - Injection site indentation [Unknown]
  - Device use issue [Unknown]
  - Device delivery system issue [Unknown]
  - Drug dependence [Unknown]
